FAERS Safety Report 24881878 (Version 1)
Quarter: 2025Q1

REPORT INFORMATION
  Report Type: Spontaneous
  Country: FR (occurrence: FR)
  Receive Date: 20250124
  Receipt Date: 20250124
  Transmission Date: 20250409
  Serious: Yes (Hospitalization)
  Sender: CHEPLAPHARM
  Company Number: None

PATIENT
  Age: 42 Year
  Sex: Male
  Weight: 91.699 kg

DRUGS (9)
  1. OLANZAPINE [Suspect]
     Active Substance: OLANZAPINE
     Indication: Nervous system disorder
     Route: 048
     Dates: end: 20241118
  2. CYAMEMAZINE [Suspect]
     Active Substance: CYAMEMAZINE
     Indication: Nervous system disorder
     Route: 048
     Dates: start: 20241020, end: 20241110
  3. TRIMEPRAZINE [Concomitant]
     Active Substance: TRIMEPRAZINE
  4. MOVICOL [Concomitant]
     Active Substance: POLYETHYLENE GLYCOL 3350\POTASSIUM CHLORIDE\SODIUM BICARBONATE\SODIUM CHLORIDE
  5. ENOXAPARIN [Concomitant]
     Active Substance: ENOXAPARIN
     Dosage: DAILY DOSE: 4000 IU (INTERNATIONAL UNIT)
  6. VALPROMIDE [Concomitant]
     Active Substance: VALPROMIDE
  7. ACETAMINOPHEN [Concomitant]
     Active Substance: ACETAMINOPHEN
  8. MIDAZOLAM [Concomitant]
     Active Substance: MIDAZOLAM
  9. OXAZEPAM [Concomitant]
     Active Substance: OXAZEPAM

REACTIONS (3)
  - Myositis [Recovered/Resolved]
  - Rhabdomyolysis [Recovered/Resolved]
  - Off label use [Unknown]

NARRATIVE: CASE EVENT DATE: 20241110
